FAERS Safety Report 19966770 (Version 2)
Quarter: 2021Q4

REPORT INFORMATION
  Report Type: Spontaneous
  Country: AR (occurrence: AR)
  Receive Date: 20211019
  Receipt Date: 20211104
  Transmission Date: 20220303
  Serious: Yes (Hospitalization)
  Sender: FDA-Public Use
  Company Number: AR-PFIZER INC-202101333540

PATIENT
  Age: 68 Year
  Sex: Female

DRUGS (1)
  1. ENBREL [Suspect]
     Active Substance: ETANERCEPT
     Indication: Rheumatoid arthritis
     Dosage: 50 MILLIGRAM, QWK
     Route: 065
     Dates: start: 20120312

REACTIONS (9)
  - COVID-19 [Not Recovered/Not Resolved]
  - Agitation [Not Recovered/Not Resolved]
  - Condition aggravated [Unknown]
  - Fibrosis [Unknown]
  - Limb discomfort [Unknown]
  - Alopecia [Unknown]
  - Stress [Unknown]
  - Oxygen saturation decreased [Unknown]
  - Fall [Unknown]
